FAERS Safety Report 13182503 (Version 3)
Quarter: 2017Q1

REPORT INFORMATION
  Report Type: Spontaneous
  Country: US (occurrence: US)
  Receive Date: 20170203
  Receipt Date: 20170228
  Transmission Date: 20170428
  Serious: No
  Sender: FDA-Public Use
  Company Number: US-PFIZER INC-2017042551

PATIENT
  Age: 77 Year
  Sex: Male
  Weight: 76 kg

DRUGS (2)
  1. ASPIRIN. [Concomitant]
     Active Substance: ASPIRIN
     Indication: BLOOD DISORDER
     Dosage: 100 MG, UNK
  2. LIPITOR [Suspect]
     Active Substance: ATORVASTATIN CALCIUM
     Indication: STENT PLACEMENT
     Dosage: 40 MG, UNK (ABOUT 2 MONTHS AGO)
     Dates: start: 201611

REACTIONS (5)
  - Gait disturbance [Unknown]
  - Arthropathy [Unknown]
  - Tendon discomfort [Not Recovered/Not Resolved]
  - Limb discomfort [Unknown]
  - Cardiac disorder [Unknown]
